FAERS Safety Report 22526872 (Version 3)
Quarter: 2023Q2

REPORT INFORMATION
  Report Type: Report from Study
  Country: IT (occurrence: IT)
  Receive Date: 20230606
  Receipt Date: 20230616
  Transmission Date: 20230721
  Serious: Yes (Hospitalization)
  Sender: FDA-Public Use
  Company Number: IT-ABBVIE-5187529

PATIENT
  Age: 75 Year
  Sex: Female
  Weight: 56 kg

DRUGS (16)
  1. TNB-383B [Suspect]
     Active Substance: TNB-383B
     Indication: Plasma cell myeloma
     Route: 042
     Dates: start: 20230530
  2. DEXAMETHASONE [Suspect]
     Active Substance: DEXAMETHASONE
     Indication: Plasma cell myeloma
     Route: 048
     Dates: start: 20230530
  3. LENALIDOMIDE [Suspect]
     Active Substance: LENALIDOMIDE
     Indication: Plasma cell myeloma
     Dosage: DAYS 1-21 OF 28 DAY CYCLE.
     Route: 048
     Dates: start: 20230530
  4. OMEPRAZOLE [Concomitant]
     Active Substance: OMEPRAZOLE
     Indication: Gastrointestinal disorder prophylaxis
     Route: 048
     Dates: start: 20230531, end: 20230603
  5. OMEPRAZOLE [Concomitant]
     Active Substance: OMEPRAZOLE
     Indication: Gastrointestinal disorder prophylaxis
     Route: 048
     Dates: start: 20230530, end: 20230530
  6. ACYCLOVIR [Concomitant]
     Active Substance: ACYCLOVIR
     Indication: Antiviral prophylaxis
     Route: 048
     Dates: start: 202102
  7. BISOPROLOL [Concomitant]
     Active Substance: BISOPROLOL
     Indication: Hypertension
     Route: 048
     Dates: start: 202206
  8. FOLIC ACID [Concomitant]
     Active Substance: FOLIC ACID
     Indication: Anaemia
     Route: 048
     Dates: start: 20230522
  9. FERROUS SULFATE [Concomitant]
     Active Substance: FERROUS SULFATE
     Indication: Anaemia
     Route: 048
     Dates: start: 20230522
  10. ALLOPURINOL [Concomitant]
     Active Substance: ALLOPURINOL
     Indication: Prophylaxis
     Route: 048
     Dates: start: 20230530, end: 20230613
  11. ENOXAPARIN SODIUM [Concomitant]
     Active Substance: ENOXAPARIN SODIUM
     Indication: Thrombosis prophylaxis
     Route: 058
     Dates: start: 20230531
  12. PANTOPRAZOLE [Concomitant]
     Active Substance: PANTOPRAZOLE
     Indication: Gastrointestinal disorder prophylaxis
     Route: 048
     Dates: start: 202102, end: 20230529
  13. NORVASC [Concomitant]
     Active Substance: AMLODIPINE BESYLATE
     Indication: Hypertension
     Route: 048
     Dates: start: 202206
  14. LASIX [Concomitant]
     Active Substance: FUROSEMIDE
     Indication: Prophylaxis
     Route: 048
     Dates: start: 202206
  15. CHLORPHENIRAMINE [Concomitant]
     Active Substance: CHLORPHENIRAMINE
     Indication: Prophylaxis
     Dosage: TIME INTERVAL: TOTAL
     Route: 042
     Dates: start: 20230530, end: 20230530
  16. ACETAMINOPHEN [Concomitant]
     Active Substance: ACETAMINOPHEN
     Indication: Prophylaxis
     Route: 048
     Dates: start: 20230530, end: 20230531

REACTIONS (1)
  - Alanine aminotransferase increased [Recovered/Resolved]

NARRATIVE: CASE EVENT DATE: 20230531
